FAERS Safety Report 9844884 (Version 1)
Quarter: 2014Q1

REPORT INFORMATION
  Report Type: Spontaneous
  Country: AU (occurrence: None)
  Receive Date: 20140122
  Receipt Date: 20140122
  Transmission Date: 20141002
  Serious: Yes (Hospitalization)
  Sender: FDA-Public Use
  Company Number: ABR_01391_2014

PATIENT
  Sex: Male

DRUGS (4)
  1. AMPHETAMINE [Suspect]
     Indication: MATERNAL EXPOSURE DURING PREGNANCY
     Dosage: DF, 35 WEEKS, 6 DAYS UNTIL NOT CONTINUING
     Route: 064
  2. NICOTINE [Suspect]
     Indication: MATERNAL EXPOSURE DURING PREGNANCY
     Dosage: DF, 35 WEEKS 6 DAYS UNTIL NOT CONTINUING
     Route: 064
  3. ANTI-DEPRESSANTS [Concomitant]
  4. MOOD STABILIZERS [Concomitant]

REACTIONS (10)
  - Maternal drugs affecting foetus [None]
  - Placenta praevia [None]
  - Foetal hypokinesia [None]
  - Foetal heart rate increased [None]
  - Foetal heart rate deceleration abnormality [None]
  - Caesarean section [None]
  - Premature separation of placenta [None]
  - Hypoglycaemia neonatal [None]
  - Low birth weight baby [None]
  - Feeding disorder neonatal [None]
